FAERS Safety Report 9354287 (Version 2)
Quarter: 2013Q3

REPORT INFORMATION
  Report Type: Spontaneous
  Country: IT (occurrence: None)
  Receive Date: 20130613
  Receipt Date: 20130723
  Transmission Date: 20140515
  Serious: Yes (Hospitalization)
  Sender: FDA-Public Use
  Company Number: COL_13759_2013

PATIENT
  Sex: Female

DRUGS (1)
  1. SODIUM FLOURIDE [Suspect]
     Indication: DENTAL CARIES
     Route: 048

REACTIONS (4)
  - Nausea [None]
  - Retching [None]
  - Vomiting [None]
  - Abdominal pain [None]
